FAERS Safety Report 4699610-6 (Version None)
Quarter: 2005Q2

REPORT INFORMATION
  Report Type: 
  Country: None (occurrence: None)
  Receive Date: 20050624
  Receipt Date: 20050610
  Transmission Date: 20051028
  Serious: Yes (Other)
  Sender: FDA-Public Use
  Company Number: SE-JNJFOC-20050403076

PATIENT
  Age: 32 Year
  Sex: Female

DRUGS (8)
  1. REMICADE [Suspect]
     Indication: CROHN'S DISEASE
     Route: 042
  2. STEROIDS [Concomitant]
  3. AZATIOPRIN [Concomitant]
  4. IMUREL [Concomitant]
  5. COLIFOAM [Concomitant]
  6. FLORINEF [Concomitant]
  7. DECADRON CUM NEOMYCIN [Concomitant]
  8. PREDNISOLONE [Concomitant]

REACTIONS (2)
  - MYCOPLASMA INFECTION [None]
  - PNEUMOCYSTIS JIROVECI PNEUMONIA [None]
